FAERS Safety Report 12610618 (Version 1)
Quarter: 2016Q3

REPORT INFORMATION
  Report Type: Spontaneous
  Country: US (occurrence: US)
  Receive Date: 20160801
  Receipt Date: 20160801
  Transmission Date: 20161109
  Serious: Yes (Hospitalization)
  Sender: FDA-Public Use
  Company Number: US-INSYS THERAPEUTICS, INC-INS201605-000247

PATIENT
  Sex: Male

DRUGS (2)
  1. FENTANYL. [Suspect]
     Active Substance: FENTANYL
     Indication: PRODUCT USED FOR UNKNOWN INDICATION
  2. HEROIN [Suspect]
     Active Substance: DIACETYLMORPHINE

REACTIONS (4)
  - Accidental overdose [Unknown]
  - Unresponsive to stimuli [Recovering/Resolving]
  - Loss of consciousness [Recovering/Resolving]
  - Cyanosis [Recovering/Resolving]
